FAERS Safety Report 8621450-3 (Version None)
Quarter: 2012Q3

REPORT INFORMATION
  Report Type: 
  Country: None (occurrence: None)
  Receive Date: 20120824
  Receipt Date: 20120815
  Transmission Date: 20120928
  Serious: Yes (Hospitalization)
  Sender: FDA-Public Use
  Company Number: US-ASTRAZENECA-2012SE57983

PATIENT
  Age: 68 Year
  Sex: Female

DRUGS (3)
  1. AZOR [Suspect]
     Route: 065
  2. NEXIUM [Suspect]
     Route: 048
  3. EXEDRIN [Suspect]
     Route: 065

REACTIONS (1)
  - DRUG HYPERSENSITIVITY [None]
